FAERS Safety Report 6406437-3 (Version None)
Quarter: 2009Q4

REPORT INFORMATION
  Report Type: 
  Country: None (occurrence: None)
  Receive Date: 20091019
  Receipt Date: 20091009
  Transmission Date: 20100525
  Serious: Yes (Hospitalization, Other)
  Sender: FDA-Public Use
  Company Number: US-ABBOTT-09P-163-0602470-00

PATIENT
  Sex: Female
  Weight: 76.272 kg

DRUGS (15)
  1. HUMIRA [Suspect]
     Indication: CROHN'S DISEASE
     Dates: start: 20070101
  2. HUMIRA [Suspect]
     Dates: end: 20080901
  3. PREDNISONE TAB [Suspect]
     Indication: DRUG USE FOR UNKNOWN INDICATION
  4. BUPROPION HCL [Concomitant]
     Indication: DEPRESSION
  5. CITALOPRAM HYDROBROMIDE [Concomitant]
     Indication: DEPRESSION
  6. ENALAPRIL MALEATE [Concomitant]
     Indication: HYPERTENSION
  7. MERCAPTOPURINE [Concomitant]
     Indication: CROHN'S DISEASE
  8. TOPIRAMATE [Concomitant]
     Indication: HEADACHE
  9. CLONAZEPAM [Concomitant]
     Indication: INSOMNIA
  10. POTASSIUM CITRATE [Concomitant]
     Indication: NEPHROLITHIASIS
  11. RELPAX [Concomitant]
     Indication: HEADACHE
     Dosage: 3 TABLETS MAXIMUM PER DAY, AS REQUIRED
  12. SINGULAIR [Concomitant]
     Indication: HYPERSENSITIVITY
  13. SINGULAIR [Concomitant]
     Indication: ASTHMA
  14. ALBUTEROL [Concomitant]
     Indication: ASTHMA
     Route: 055
  15. ALBUTEROL [Concomitant]
     Indication: HYPERSENSITIVITY

REACTIONS (7)
  - BLOOD POTASSIUM DECREASED [None]
  - CROHN'S DISEASE [None]
  - DRUG INEFFECTIVE [None]
  - FAECAL INCONTINENCE [None]
  - INJECTION SITE HAEMATOMA [None]
  - IRRITABLE BOWEL SYNDROME [None]
  - NAUSEA [None]
